FAERS Safety Report 24648464 (Version 2)
Quarter: 2024Q4

REPORT INFORMATION
  Report Type: Report from Study
  Country: MX (occurrence: MX)
  Receive Date: 20241121
  Receipt Date: 20241126
  Transmission Date: 20250115
  Serious: Yes (Death, Hospitalization)
  Sender: BAYER HEALTHCARE PHARMACEUTICALS INC.
  Company Number: MX-BAYER-2024A166061

PATIENT
  Age: 70 Year
  Sex: Male

DRUGS (1)
  1. ADEMPAS [Suspect]
     Active Substance: RIOCIGUAT
     Indication: Pulmonary hypertension
     Dosage: 2.5 MG, Q8HR
     Route: 048
     Dates: start: 20240625, end: 20241110

REACTIONS (1)
  - Disease complication [Fatal]

NARRATIVE: CASE EVENT DATE: 20241114
